FAERS Safety Report 7986010-6 (Version None)
Quarter: 2011Q4

REPORT INFORMATION
  Report Type: 
  Country: None (occurrence: None)
  Receive Date: 20111216
  Receipt Date: 20111207
  Transmission Date: 20120403
  Serious: Yes (Other)
  Sender: FDA-Public Use
  Company Number: TH-MILLENNIUM PHARMACEUTICALS, INC.-2011-06254

PATIENT

DRUGS (3)
  1. PREDNISONE [Concomitant]
  2. MELPHALAN HYDROCHLORIDE [Concomitant]
  3. VELCADE [Suspect]
     Indication: PRODUCT USED FOR UNKNOWN INDICATION
     Route: 065

REACTIONS (1)
  - COLITIS [None]
